FAERS Safety Report 16818672 (Version 1)
Quarter: 2019Q3

REPORT INFORMATION
  Report Type: Spontaneous
  Country: BR (occurrence: BR)
  Receive Date: 20190917
  Receipt Date: 20190917
  Transmission Date: 20191005
  Serious: Yes (Other)
  Sender: FDA-Public Use
  Company Number: BR-GLAXOSMITHKLINE-BR2019GSK099244

PATIENT
  Age: 30 Year
  Sex: Female

DRUGS (1)
  1. AEROLIN [Suspect]
     Active Substance: ALBUTEROL
     Indication: ASTHMA
     Dosage: 2 DF, QID

REACTIONS (4)
  - Asthmatic crisis [Not Recovered/Not Resolved]
  - Therapy cessation [Unknown]
  - Product use issue [Unknown]
  - Product complaint [Unknown]
